FAERS Safety Report 19611435 (Version 1)
Quarter: 2021Q3

REPORT INFORMATION
  Report Type: Spontaneous
  Country: SE (occurrence: SE)
  Receive Date: 20210727
  Receipt Date: 20210727
  Transmission Date: 20211014
  Serious: No
  Sender: FDA-Public Use
  Company Number: SE-LUPIN PHARMACEUTICALS INC.-2021-12620

PATIENT
  Age: 17 Year
  Sex: Female

DRUGS (4)
  1. OXAZEPAM. [Concomitant]
     Active Substance: OXAZEPAM
     Indication: MANIA
     Dosage: UNK
     Route: 065
  2. LORAZEPAM. [Concomitant]
     Active Substance: LORAZEPAM
     Indication: MANIA
     Dosage: UNK
     Route: 065
  3. PREDNISOLONE. [Suspect]
     Active Substance: PREDNISOLONE
     Indication: ENCEPHALITIS AUTOIMMUNE
     Dosage: UNK
     Route: 048
  4. METHYLPREDNISOLONE. [Suspect]
     Active Substance: METHYLPREDNISOLONE
     Indication: ENCEPHALITIS AUTOIMMUNE
     Dosage: 1 GRAM, QD
     Route: 065

REACTIONS (1)
  - Obesity [Recovering/Resolving]
